FAERS Safety Report 24319200 (Version 1)
Quarter: 2024Q3

REPORT INFORMATION
  Report Type: Report from Study
  Country: US (occurrence: US)
  Receive Date: 20240913
  Receipt Date: 20240913
  Transmission Date: 20241017
  Serious: Yes (Hospitalization)
  Sender: ABBVIE
  Company Number: US-ABBVIE-5871018

PATIENT
  Sex: Female

DRUGS (1)
  1. IMBRUVICA [Suspect]
     Active Substance: IBRUTINIB
     Indication: Immunodeficiency
     Route: 048

REACTIONS (5)
  - Immune system disorder [Unknown]
  - Pneumonia [Unknown]
  - Back disorder [Unknown]
  - White blood cell count abnormal [Unknown]
  - Arthropathy [Unknown]
